FAERS Safety Report 7927958-8 (Version None)
Quarter: 2011Q4

REPORT INFORMATION
  Report Type: 
  Country: None (occurrence: None)
  Receive Date: 20111118
  Receipt Date: 20111108
  Transmission Date: 20120403
  Serious: Yes (Other)
  Sender: FDA-Public Use
  Company Number: US-BAYER-2011-044859

PATIENT
  Age: 38 Year
  Sex: Female
  Weight: 61.224 kg

DRUGS (6)
  1. YASMIN [Suspect]
  2. YAZ [Suspect]
  3. CENTRUM [Concomitant]
     Indication: VITAMIN SUPPLEMENTATION
     Dosage: UNK UNK, QD
     Dates: start: 20030101, end: 20110101
  4. YAZ [Suspect]
     Indication: CONTRACEPTION
     Dosage: UNK
     Dates: start: 20070901, end: 20090701
  5. YASMIN [Suspect]
     Indication: CONTRACEPTION
     Dosage: UNK
     Dates: start: 20030301, end: 20070901
  6. IBUPROFEN (ADVIL) [Concomitant]
     Indication: HEADACHE
     Dosage: UNK UNK, PRN
     Dates: start: 20030101, end: 20110101

REACTIONS (11)
  - CHOLECYSTITIS [None]
  - NAUSEA [None]
  - CHOLELITHIASIS [None]
  - PAIN [None]
  - FEAR [None]
  - CHEST PAIN [None]
  - INJURY [None]
  - BILIARY COLIC [None]
  - CONSTIPATION [None]
  - ABDOMINAL PAIN UPPER [None]
  - VOMITING [None]
